FAERS Safety Report 5278997-X (Version None)
Quarter: 2007Q1

REPORT INFORMATION
  Report Type: 
  Country: None (occurrence: None)
  Receive Date: 20070328
  Receipt Date: 20061002
  Transmission Date: 20070707
  Serious: No
  Sender: FDA-Public Use
  Company Number: US-AMGEN-US195337

PATIENT
  Age: 14 Year
  Sex: Male
  Weight: 79 kg

DRUGS (3)
  1. NEULASTA [Suspect]
     Indication: CHEMOTHERAPY
     Route: 058
     Dates: start: 20060101
  2. METHOTREXATE [Concomitant]
     Route: 065
     Dates: start: 20060101
  3. CYTARABINE [Concomitant]
     Route: 065
     Dates: start: 20060101

REACTIONS (2)
  - DRUG INEFFECTIVE [None]
  - WHITE BLOOD CELL COUNT DECREASED [None]
